FAERS Safety Report 10041257 (Version 1)
Quarter: 2014Q1

REPORT INFORMATION
  Report Type: Spontaneous
  Country: US (occurrence: None)
  Receive Date: 20140326
  Receipt Date: 20140326
  Transmission Date: 20141002
  Serious: Yes (Other)
  Sender: FDA-Public Use
  Company Number: None

PATIENT
  Sex: 0

DRUGS (1)
  1. EFFEXOR [Suspect]

REACTIONS (7)
  - Depression [None]
  - Anxiety [None]
  - Vision blurred [None]
  - Vomiting [None]
  - Nausea [None]
  - Disturbance in attention [None]
  - Insomnia [None]
